FAERS Safety Report 15832554 (Version 1)
Quarter: 2019Q1

REPORT INFORMATION
  Report Type: Spontaneous
  Country: MT (occurrence: MT)
  Receive Date: 20190116
  Receipt Date: 20190116
  Transmission Date: 20190417
  Serious: Yes (Other)
  Sender: FDA-Public Use
  Company Number: PHHY2019MT003839

PATIENT
  Age: 81 Year
  Sex: Female

DRUGS (2)
  1. BENDROFLUMETHIAZIDE [Concomitant]
     Active Substance: BENDROFLUMETHIAZIDE
     Indication: HYPERTENSION
     Dosage: 2.5 MG, UNK
     Route: 065
  2. QUETIAPINE. [Suspect]
     Active Substance: QUETIAPINE
     Indication: ABNORMAL BEHAVIOUR
     Dosage: 25 MG, QD
     Route: 065

REACTIONS (5)
  - Pyrexia [Unknown]
  - Muscle rigidity [Unknown]
  - Neuroleptic malignant syndrome [Recovering/Resolving]
  - Tachycardia [Unknown]
  - Tachypnoea [Unknown]
